FAERS Safety Report 19171018 (Version 4)
Quarter: 2021Q3

REPORT INFORMATION
  Report Type: Report from Study
  Country: None (occurrence: US)
  Receive Date: 20210422
  Receipt Date: 20210731
  Transmission Date: 20211014
  Serious: Yes (Other)
  Sender: FDA-Public Use
  Company Number: US-ABBVIE-21K-163-3868110-00

PATIENT
  Age: 59 Year
  Sex: Female
  Weight: 108.87 kg

DRUGS (2)
  1. RINVOQ [Suspect]
     Active Substance: UPADACITINIB
     Indication: RHEUMATOID ARTHRITIS
     Route: 048
     Dates: start: 20210222, end: 20210320
  2. RINVOQ [Suspect]
     Active Substance: UPADACITINIB
     Route: 048
     Dates: start: 2021

REACTIONS (6)
  - Dry mouth [Not Recovered/Not Resolved]
  - Wrist fracture [Not Recovered/Not Resolved]
  - Hand fracture [Unknown]
  - Fall [Not Recovered/Not Resolved]
  - Loss of personal independence in daily activities [Unknown]
  - Rheumatoid arthritis [Not Recovered/Not Resolved]

NARRATIVE: CASE EVENT DATE: 2021
